FAERS Safety Report 10032267 (Version 2)
Quarter: 2014Q2

REPORT INFORMATION
  Report Type: Report from Study
  Country: US (occurrence: US)
  Receive Date: 20140324
  Receipt Date: 20140423
  Transmission Date: 20141212
  Serious: Yes (Death)
  Sender: FDA-Public Use
  Company Number: US-ACTELION-A-US2014-96100

PATIENT
  Age: 79 Year
  Sex: Female

DRUGS (3)
  1. MACITENTAN [Suspect]
     Indication: PULMONARY ARTERIAL HYPERTENSION
     Dosage: UNK
     Route: 048
  2. METOPROLOL [Concomitant]
  3. CYMBALTA [Concomitant]

REACTIONS (3)
  - Cardiac failure congestive [Fatal]
  - Pulmonary arterial hypertension [Fatal]
  - Disease progression [Fatal]
